FAERS Safety Report 5656733-2 (Version None)
Quarter: 2008Q1

REPORT INFORMATION
  Report Type: 
  Country: None (occurrence: None)
  Receive Date: 20080306
  Receipt Date: 20080306
  Transmission Date: 20080703
  Serious: No
  Sender: FDA-Public Use
  Company Number: None

PATIENT
  Age: 66 Year
  Sex: Male

DRUGS (1)
  1. VARENICLINE [Suspect]
     Dosage: 1MG BID PO
     Route: 048
     Dates: start: 20080201, end: 20080304

REACTIONS (7)
  - AGITATION [None]
  - CONFUSIONAL STATE [None]
  - DEPRESSION [None]
  - DRUG INEFFECTIVE [None]
  - HALLUCINATION [None]
  - INSOMNIA [None]
  - PSYCHOTIC DISORDER [None]
